FAERS Safety Report 8757733 (Version 5)
Quarter: 2012Q4

REPORT INFORMATION
  Report Type: 
  Country: US (occurrence: US)
  Receive Date: 20120828
  Receipt Date: 20121212
  Transmission Date: 20130627
  Serious: Yes (Hospitalization, Disabling, Other)
  Sender: FDA-Public Use
  Company Number: US-009507513-1206USA01131

PATIENT

DRUGS (5)
  1. FOSAMAX [Suspect]
     Indication: OSTEOPENIA
     Dosage: 70 mg, qw
     Route: 048
     Dates: start: 200411, end: 200802
  2. FOSAMAX [Suspect]
     Indication: OSTEOPOROSIS PROPHYLAXIS
     Dosage: 70 mg, qw
     Route: 048
     Dates: start: 20080328, end: 201108
  3. FOSAMAX [Suspect]
     Indication: OSTEOPOROSIS
  4. ACTONEL [Suspect]
     Indication: OSTEOPOROSIS PROPHYLAXIS
     Dosage: 35 mg, UNK
     Dates: start: 200609, end: 200811
  5. ACTONEL [Suspect]
     Indication: OSTEOPOROSIS

REACTIONS (19)
  - Surgery [Not Recovered/Not Resolved]
  - Femur fracture [Unknown]
  - Femur fracture [Not Recovered/Not Resolved]
  - Osteoporosis [Unknown]
  - Low turnover osteopathy [Unknown]
  - Foot fracture [Unknown]
  - Fracture delayed union [Unknown]
  - Medical device removal [Unknown]
  - Blood cholesterol increased [Unknown]
  - Device failure [Unknown]
  - Lumbar spinal stenosis [Not Recovered/Not Resolved]
  - Arthritis [Unknown]
  - Glaucoma [Unknown]
  - Intervertebral disc protrusion [Unknown]
  - Arthropathy [Unknown]
  - Femur fracture [Unknown]
  - Transaminases increased [Recovered/Resolved]
  - Back pain [Not Recovered/Not Resolved]
  - Hypovitaminosis [Unknown]
